FAERS Safety Report 22195666 (Version 1)
Quarter: 2023Q2

REPORT INFORMATION
  Report Type: Spontaneous
  Country: SI (occurrence: SI)
  Receive Date: 20230411
  Receipt Date: 20230411
  Transmission Date: 20230722
  Serious: Yes (Other)
  Sender: FDA-Public Use
  Company Number: SI-BAYER-2021A257119

PATIENT
  Age: 82 Year
  Sex: Male

DRUGS (13)
  1. XARELTO [Suspect]
     Active Substance: RIVAROXABAN
     Indication: Atrial fibrillation
     Dosage: 20 MG
     Route: 048
     Dates: start: 20200306, end: 20211124
  2. PIPERACILLIN [Concomitant]
     Active Substance: PIPERACILLIN
  3. TAZOBACTAM [Concomitant]
     Active Substance: TAZOBACTAM
  4. METHYLPREDNISOLONE [Concomitant]
     Active Substance: METHYLPREDNISOLONE
  5. PANTOPRAZOLE [Concomitant]
     Active Substance: PANTOPRAZOLE
  6. CHOLECALCIFEROL [Concomitant]
     Active Substance: CHOLECALCIFEROL
  7. CALCIUM CARBONATE [Concomitant]
     Active Substance: CALCIUM CARBONATE
  8. VALSARTAN [Concomitant]
     Active Substance: VALSARTAN
  9. DOXAZOSIN [Concomitant]
     Active Substance: DOXAZOSIN MESYLATE
  10. ROSUVASTATIN [Concomitant]
     Active Substance: ROSUVASTATIN
  11. REPAGLINIDE [Concomitant]
     Active Substance: REPAGLINIDE
  12. ACETAMINOPHEN [Concomitant]
     Active Substance: ACETAMINOPHEN
  13. TRAMADOL [Concomitant]
     Active Substance: TRAMADOL

REACTIONS (3)
  - Ischaemic stroke [Not Recovered/Not Resolved]
  - COVID-19 pneumonia [Not Recovered/Not Resolved]
  - Confusional state [Not Recovered/Not Resolved]

NARRATIVE: CASE EVENT DATE: 20211101
